FAERS Safety Report 23970946 (Version 1)
Quarter: 2024Q2

REPORT INFORMATION
  Report Type: Spontaneous
  Country: CH (occurrence: CH)
  Receive Date: 20240613
  Receipt Date: 20240613
  Transmission Date: 20240716
  Serious: Yes (Other)
  Sender: FDA-Public Use
  Company Number: CH-AMGEN-CHESP2024113253

PATIENT
  Age: 77 Year
  Sex: Female

DRUGS (4)
  1. APREMILAST [Suspect]
     Active Substance: APREMILAST
     Indication: Cutaneous T-cell lymphoma
     Dosage: UNK
     Route: 065
  2. IXEKIZUMAB [Suspect]
     Active Substance: IXEKIZUMAB
     Indication: Cutaneous T-cell lymphoma
     Route: 065
  3. TOFACITINIB [Suspect]
     Active Substance: TOFACITINIB
     Indication: Cutaneous T-cell lymphoma
     Route: 065
  4. ACITRETIN [Suspect]
     Active Substance: ACITRETIN
     Indication: Cutaneous T-cell lymphoma
     Route: 065

REACTIONS (2)
  - Cutaneous T-cell lymphoma [Unknown]
  - Alopecia areata [Unknown]
